FAERS Safety Report 5893043-2 (Version None)
Quarter: 2008Q3

REPORT INFORMATION
  Report Type: 
  Country: None (occurrence: None)
  Receive Date: 20080923
  Receipt Date: 20080211
  Transmission Date: 20090109
  Serious: No
  Sender: FDA-Public Use
  Company Number: US-ASTRAZENECA-2006UW27679

PATIENT
  Age: 15901 Day
  Sex: Male
  Weight: 110 kg

DRUGS (6)
  1. SEROQUEL [Suspect]
     Indication: BIPOLAR DISORDER
     Dosage: 300- 400 MG
     Route: 048
     Dates: start: 20030313
  2. HALDOL [Concomitant]
     Dosage: 10-150 MG
     Dates: start: 19851001, end: 19981001
  3. TRILAFON [Concomitant]
     Dates: start: 19860101
  4. RISPERDAL [Concomitant]
     Dates: start: 20050101
  5. THORAZINE [Concomitant]
     Dates: start: 19851001
  6. LITHIUM CARBONATE [Concomitant]
     Dosage: 300 - 600 MG
     Dates: start: 19870101, end: 20010401

REACTIONS (5)
  - BLOOD CHOLESTEROL INCREASED [None]
  - DIABETES MELLITUS [None]
  - DIABETIC GASTROPARESIS [None]
  - HYPERLIPIDAEMIA [None]
  - OBESITY [None]
